FAERS Safety Report 20370730 (Version 1)
Quarter: 2022Q1

REPORT INFORMATION
  Report Type: Spontaneous
  Country: IT (occurrence: IT)
  Receive Date: 20220124
  Receipt Date: 20220124
  Transmission Date: 20220423
  Serious: No
  Sender: FDA-Public Use
  Company Number: IT-GLAXOSMITHKLINE-IT2022EME011705

PATIENT

DRUGS (1)
  1. SOTROVIMAB [Suspect]
     Active Substance: SOTROVIMAB
     Indication: Product used for unknown indication
     Dosage: 500 MG
     Route: 042

REACTIONS (1)
  - Headache [Recovered/Resolved]
